FAERS Safety Report 5049730-1 (Version None)
Quarter: 2006Q3

REPORT INFORMATION
  Report Type: 
  Country: None (occurrence: None)
  Receive Date: 20060707
  Receipt Date: 20060626
  Transmission Date: 20061208
  Serious: Yes (Hospitalization)
  Sender: FDA-Public Use
  Company Number: 2006BI007644

PATIENT
  Age: 60 Year
  Sex: Female

DRUGS (5)
  1. AVONEX [Suspect]
     Indication: MULTIPLE SCLEROSIS
     Dosage: 30 UG; QW; IM
     Route: 030
     Dates: start: 19980801
  2. PROVIGIL [Concomitant]
  3. ZESTRIL [Concomitant]
  4. LASIX [Concomitant]
  5. POTASSIUM [Concomitant]

REACTIONS (1)
  - CHOLECYSTECTOMY [None]
